FAERS Safety Report 7267396-7 (Version None)
Quarter: 2011Q1

REPORT INFORMATION
  Report Type: 
  Country: None (occurrence: None)
  Receive Date: 20110201
  Receipt Date: 20100929
  Transmission Date: 20110831
  Serious: No
  Sender: FDA-Public Use
  Company Number: A0885359A

PATIENT
  Sex: Male

DRUGS (1)
  1. ARIXTRA [Suspect]
     Dosage: 5MG UNKNOWN
     Route: 065

REACTIONS (2)
  - CONTUSION [None]
  - DRUG ADMINISTRATION ERROR [None]
